FAERS Safety Report 6163375-1 (Version None)
Quarter: 2009Q2

REPORT INFORMATION
  Report Type: 
  Country: None (occurrence: None)
  Receive Date: 20090422
  Receipt Date: 20040503
  Transmission Date: 20091009
  Serious: No
  Sender: FDA-Public Use
  Company Number: US-SOLVAY-00204001213

PATIENT
  Age: 58 Year
  Sex: Female
  Weight: 58.06 kg

DRUGS (3)
  1. MAXZIDE [Concomitant]
     Indication: HYPERTENSION
     Dosage: DAILY DOSE: 1 DF.
     Route: 048
  2. ANDROGEL [Suspect]
     Indication: ACCIDENTAL EXPOSURE
     Dosage: DAILY DOSE: 2.5 G.
     Route: 062
  3. PLAVIX [Concomitant]
     Indication: ANTICOAGULANT THERAPY
     Dosage: DAILY DOSE: 1 DF.
     Route: 048

REACTIONS (2)
  - HAIR GROWTH ABNORMAL [None]
  - HIRSUTISM [None]
